FAERS Safety Report 24738432 (Version 1)
Quarter: 2024Q4

REPORT INFORMATION
  Report Type: Spontaneous
  Country: CZ (occurrence: CZ)
  Receive Date: 20241216
  Receipt Date: 20241216
  Transmission Date: 20250115
  Serious: Yes (Life-Threatening, Hospitalization, Disabling, Other)
  Sender: MERCK
  Company Number: None

PATIENT
  Age: 66 Year
  Sex: Male
  Weight: 85 kg

DRUGS (14)
  1. KEYTRUDA [Suspect]
     Active Substance: PEMBROLIZUMAB
     Indication: Renal cancer
     Dosage: ADMINISTERED 3 TIMES IN TOTAL (IN 3 WEEK CYCLES)
     Route: 042
     Dates: start: 20240701, end: 20240812
  2. ORGOVYX [Concomitant]
     Active Substance: RELUGOLIX
     Indication: Prostate cancer
     Dosage: 3-0-0
     Route: 048
     Dates: start: 20240614
  3. THEOPHYLLINE [Concomitant]
     Active Substance: THEOPHYLLINE
     Dosage: 0-0-1
  4. FENOTEROL HYDROBROMIDE\IPRATROPIUM BROMIDE [Concomitant]
     Active Substance: FENOTEROL HYDROBROMIDE\IPRATROPIUM BROMIDE
     Dosage: 2-3 TIMES A DAY
     Route: 045
  5. FENOTEROL HYDROBROMIDE\IPRATROPIUM BROMIDE [Concomitant]
     Active Substance: FENOTEROL HYDROBROMIDE\IPRATROPIUM BROMIDE
     Dosage: 2-3X A DAY
  6. DENOSUMAB [Concomitant]
     Active Substance: DENOSUMAB
     Dosage: EVERY 4 WEEKS
  7. CALCIUM CARBONATE [Concomitant]
     Active Substance: CALCIUM CARBONATE
     Dosage: 1000MG/800IU 0-1-0
     Route: 048
  8. SERETIDE [Concomitant]
     Active Substance: FLUTICASONE PROPIONATE\SALMETEROL XINAFOATE
     Dosage: 50MCG/250MCG 1-0-1
  9. LENVATINIB [Concomitant]
     Active Substance: LENVATINIB
     Indication: Renal cancer
     Dosage: ONCE A DAY UNTIL 09.08.2024, THEN REDUCED TO 10 MG PER DAY
     Route: 048
     Dates: start: 20240701, end: 20240808
  10. LENVATINIB [Concomitant]
     Active Substance: LENVATINIB
     Dosage: ONCE A DAY, REDUCED TO 10 MG ON 09.08.2024
     Route: 048
     Dates: start: 20240809, end: 20240821
  11. ALLOPURINOL [Concomitant]
     Active Substance: ALLOPURINOL
     Dosage: 0-1-0
  12. SERETIDE [Concomitant]
     Active Substance: FLUTICASONE PROPIONATE\SALMETEROL XINAFOATE
     Dosage: 50MCG/250MCG 1-0-1
  13. VITRUM PERFORMANCE [Concomitant]
     Dosage: 10MG/10MG 1-0-0
     Route: 048
  14. LAGO [Concomitant]
     Dosage: 1-1-1

REACTIONS (5)
  - Immune-mediated lung disease [Recovering/Resolving]
  - Oedema peripheral [Unknown]
  - Ejection fraction decreased [Unknown]
  - Ventricular compliance decreased [Unknown]
  - Aortic dilatation [Unknown]

NARRATIVE: CASE EVENT DATE: 20240801
